FAERS Safety Report 12711689 (Version 1)
Quarter: 2016Q3

REPORT INFORMATION
  Report Type: Spontaneous
  Country: FR (occurrence: FR)
  Receive Date: 20160902
  Receipt Date: 20160902
  Transmission Date: 20161109
  Serious: Yes (Hospitalization, Other)
  Sender: FDA-Public Use
  Company Number: FR-009507513-1608FRA015424

PATIENT
  Age: 85 Year
  Sex: Male

DRUGS (11)
  1. VIRAFERONPEG [Suspect]
     Active Substance: PEGINTERFERON ALFA-2B
     Indication: HEPATITIS C
     Dosage: UNK
     Dates: start: 20020423, end: 20021030
  2. REBETOL [Suspect]
     Active Substance: RIBAVIRIN
     Indication: HEPATITIS C
     Dosage: UNK
     Route: 048
     Dates: start: 20020423, end: 20021015
  3. EUPANTOL [Concomitant]
     Active Substance: PANTOPRAZOLE SODIUM
     Indication: CARDIOMYOPATHY
     Dosage: 40 MG, QD
     Dates: start: 201402
  4. HYPERIUM [Concomitant]
     Active Substance: RILMENIDINE PHOSPHATE
     Indication: HYPERTENSION
     Dosage: 1 MG, BID
     Dates: start: 2016
  5. LASILIX [Concomitant]
     Active Substance: FUROSEMIDE
     Indication: CARDIOMYOPATHY
     Dosage: 40 MG, QD
  6. ALDACTONE [Concomitant]
     Active Substance: SPIRONOLACTONE
     Indication: HYPERTENSION
     Dosage: 25 MG, QD
     Dates: start: 201402
  7. TEMERIT [Concomitant]
     Active Substance: NEBIVOLOL
     Indication: CARDIOMYOPATHY
     Dosage: 5 MG, QD
     Dates: start: 20130612
  8. DELURSAN [Concomitant]
     Active Substance: URSODIOL
     Indication: HEPATIC CIRRHOSIS
     Dosage: 500 MG, BID
     Dates: start: 2016
  9. APROVEL [Concomitant]
     Active Substance: IRBESARTAN
     Indication: CARDIOMYOPATHY
     Dosage: 300 MG, QD
     Dates: start: 20131202
  10. COUMADIN [Concomitant]
     Active Substance: WARFARIN SODIUM
     Indication: CARDIOMYOPATHY
     Dosage: UNK, QD
     Dates: start: 2016
  11. XATRAL [Concomitant]
     Active Substance: ALFUZOSIN
     Indication: CARDIOMYOPATHY
     Dosage: 10 MG, QD

REACTIONS (4)
  - Portal vein thrombosis [Not Recovered/Not Resolved]
  - Hepatocellular carcinoma [Not Recovered/Not Resolved]
  - Metastases to lung [Not Recovered/Not Resolved]
  - Pancreatic disorder [Not Recovered/Not Resolved]

NARRATIVE: CASE EVENT DATE: 20160318
